FAERS Safety Report 25478722 (Version 1)
Quarter: 2025Q2

REPORT INFORMATION
  Report Type: Spontaneous
  Country: BE (occurrence: BE)
  Receive Date: 20250625
  Receipt Date: 20250625
  Transmission Date: 20250717
  Serious: Yes (Death, Other)
  Sender: AMGEN
  Company Number: BE-AMGEN-BELSP2025119244

PATIENT

DRUGS (9)
  1. PEGFILGRASTIM [Suspect]
     Active Substance: PEGFILGRASTIM
     Indication: Prophylaxis
     Route: 058
  2. GEMCITABINE [Suspect]
     Active Substance: GEMCITABINE
     Indication: Bladder transitional cell carcinoma
     Dosage: 1000 MILLIGRAM/SQ. METER, Q2WK (ON DAY 1 AND DAY 8)
     Route: 040
  3. GEMCITABINE [Suspect]
     Active Substance: GEMCITABINE
     Dosage: 1000 MILLIGRAM/SQ. METER, Q4WK  (ON DAY 1 AND DAY 15)
     Route: 040
  4. CISPLATIN [Suspect]
     Active Substance: CISPLATIN
     Indication: Bladder transitional cell carcinoma
     Dosage: 70 MICROGRAM/SQ. METER, Q3WK (EVERY 3 WEEKS UP TO FOUR CYCLES.)
     Route: 040
  5. CISPLATIN [Suspect]
     Active Substance: CISPLATIN
     Dosage: 70 MICROGRAM/SQ. METER,Q2WK (DAY 2)(EVERY 2 WEEKS FO UPTO 4 CYCLES )
     Route: 040
  6. AVELUMAB [Suspect]
     Active Substance: AVELUMAB
     Indication: Bladder transitional cell carcinoma
     Dosage: 10 MILLIGRAM/KILOGRAM , Q2WK (INTRAVENOUSLY EVERY 2 WEEKS FOR A TOTAL OF FOUR TO SIX CYCLES IN ALL T
     Route: 040
  7. METHOTREXATE [Suspect]
     Active Substance: METHOTREXATE
     Indication: Bladder transitional cell carcinoma
     Route: 040
  8. VINBLASTINE [Suspect]
     Active Substance: VINBLASTINE
     Indication: Bladder transitional cell carcinoma
     Route: 040
  9. DOXORUBICIN [Suspect]
     Active Substance: DOXORUBICIN
     Indication: Bladder transitional cell carcinoma
     Route: 040

REACTIONS (31)
  - Death [Fatal]
  - Bladder transitional cell carcinoma [Fatal]
  - Neutropenia [Unknown]
  - Anaemia [Unknown]
  - Acute kidney injury [Unknown]
  - Stomatitis [Unknown]
  - Diarrhoea [Unknown]
  - Vomiting [Unknown]
  - Decreased appetite [Unknown]
  - Infusion site reaction [Unknown]
  - Thrombocytopenia [Unknown]
  - Alopecia [Unknown]
  - Constipation [Unknown]
  - Infusion related reaction [Unknown]
  - Dysgeusia [Unknown]
  - Abdominal pain [Unknown]
  - Gastrooesophageal reflux disease [Unknown]
  - Epistaxis [Unknown]
  - Tinnitus [Unknown]
  - Chills [Unknown]
  - Skin infection [Unknown]
  - Xeroderma [Unknown]
  - Skin lesion [Unknown]
  - Asthenia [Unknown]
  - Nausea [Unknown]
  - Headache [Unknown]
  - Pyrexia [Unknown]
  - Arthralgia [Unknown]
  - Pruritus [Unknown]
  - Myalgia [Unknown]
  - Rash [Unknown]
